FAERS Safety Report 5941545-2 (Version None)
Quarter: 2008Q4

REPORT INFORMATION
  Report Type: 
  Country: None (occurrence: None)
  Receive Date: 20081105
  Receipt Date: 20081007
  Transmission Date: 20090506
  Serious: No
  Sender: FDA-Public Use
  Company Number: US-BAYER-200830762NA

PATIENT
  Age: 28 Year
  Sex: Female
  Weight: 79 kg

DRUGS (1)
  1. OCELLA [Suspect]
     Indication: ORAL CONTRACEPTION
     Route: 048
     Dates: start: 20080713

REACTIONS (1)
  - PREGNANCY ON ORAL CONTRACEPTIVE [None]
